FAERS Safety Report 19614924 (Version 1)
Quarter: 2021Q3

REPORT INFORMATION
  Report Type: Spontaneous
  Country: US (occurrence: US)
  Receive Date: 20210726
  Receipt Date: 20210726
  Transmission Date: 20211014
  Serious: No
  Sender: FDA-Public Use
  Company Number: None

PATIENT
  Age: 70 Year
  Sex: Male
  Weight: 79.38 kg

DRUGS (1)
  1. WARFARIN (WARFARIN NA (EXELAN) 2.5MG TAB [Suspect]
     Active Substance: WARFARIN SODIUM
     Indication: CARDIOVASCULAR DISORDER
     Route: 048

REACTIONS (2)
  - Gastrointestinal haemorrhage [None]
  - Anaemia [None]

NARRATIVE: CASE EVENT DATE: 20210716
